FAERS Safety Report 4613759-5 (Version None)
Quarter: 2005Q1

REPORT INFORMATION
  Report Type: 
  Country: None (occurrence: None)
  Receive Date: 20050321
  Receipt Date: 20031121
  Transmission Date: 20050727
  Serious: Yes (Hospitalization, Disabling, Other)
  Sender: FDA-Public Use
  Company Number: US-MERCK-0311USA02550

PATIENT
  Age: 49 Year
  Sex: Female
  Weight: 85 kg

DRUGS (10)
  1. VIOXX [Suspect]
     Indication: CARPAL TUNNEL SYNDROME
     Route: 048
     Dates: start: 20020212, end: 20020908
  2. VIOXX [Suspect]
     Indication: INFLAMMATION
     Route: 048
     Dates: start: 20020212, end: 20020908
  3. LASIX [Concomitant]
     Indication: HYPERTENSION
     Route: 065
     Dates: start: 19900101
  4. LASIX [Concomitant]
     Indication: OEDEMA PERIPHERAL
     Route: 065
     Dates: start: 19900101
  5. ASPIRIN [Concomitant]
     Indication: PROPHYLAXIS
     Route: 065
     Dates: start: 20020901
  6. AVALIDE [Concomitant]
     Indication: HYPERTENSION
     Route: 065
     Dates: start: 19900101
  7. MOTRIN [Concomitant]
     Indication: PAIN
     Route: 065
     Dates: start: 20010101
  8. PREMARIN [Concomitant]
     Indication: HORMONE REPLACEMENT THERAPY
     Route: 065
     Dates: start: 20010101, end: 20020101
  9. NAPROXEN [Concomitant]
     Indication: PAIN
     Route: 065
  10. TYLENOL (CAPLET) [Concomitant]
     Route: 065

REACTIONS (12)
  - ATHEROSCLEROSIS [None]
  - BLOOD PRESSURE INCREASED [None]
  - BRADYCARDIA [None]
  - CARDIAC FAILURE [None]
  - CEREBROVASCULAR ACCIDENT [None]
  - CHEST PAIN [None]
  - FEELING ABNORMAL [None]
  - HYPERTENSIVE CRISIS [None]
  - INJURY [None]
  - JOINT DISLOCATION [None]
  - MYOCARDIAL INFARCTION [None]
  - TRANSIENT ISCHAEMIC ATTACK [None]
